FAERS Safety Report 12589904 (Version 3)
Quarter: 2016Q4

REPORT INFORMATION
  Report Type: Spontaneous
  Country: AL (occurrence: AL)
  Receive Date: 20160725
  Receipt Date: 20161011
  Transmission Date: 20170207
  Serious: No
  Sender: FDA-Public Use
  Company Number: AL-PFIZER INC-2016350193

PATIENT
  Age: 15 Year
  Sex: Male
  Weight: 64 kg

DRUGS (2)
  1. FLONIDAN [Concomitant]
     Active Substance: LORATADINE
     Indication: PREMEDICATION
     Dosage: 10MG EVENING/MORNING BEFORE THE INFUSION
     Route: 048
     Dates: start: 20150714
  2. TALIGLUCERASE ALFA [Suspect]
     Active Substance: TALIGLUCERASE ALFA
     Indication: GAUCHER^S DISEASE TYPE I
     Dosage: 60 IU/KG, EVERY OTHER WEEK
     Route: 042
     Dates: start: 20150714

REACTIONS (6)
  - Urticaria [Recovered/Resolved]
  - Lip oedema [Recovered/Resolved]
  - Sneezing [Recovered/Resolved]
  - Pruritus [Recovered/Resolved]
  - Cough [Recovered/Resolved]
  - Hypoaesthesia oral [Recovered/Resolved]

NARRATIVE: CASE EVENT DATE: 20150714
